FAERS Safety Report 5491078-5 (Version None)
Quarter: 2007Q4

REPORT INFORMATION
  Report Type: 
  Country: None (occurrence: None)
  Receive Date: 20071019
  Receipt Date: 20071009
  Transmission Date: 20080405
  Serious: No
  Sender: FDA-Public Use
  Company Number: IE-PFIZER INC-2007084915

PATIENT
  Age: 61 Year
  Sex: Male

DRUGS (16)
  1. ZYVOX [Suspect]
     Indication: PROPHYLAXIS
  2. LANSOPRAZOLE [Suspect]
     Indication: PROPHYLAXIS
     Route: 048
     Dates: start: 20070528, end: 20070709
  3. VANCOMYCIN [Suspect]
     Indication: PROPHYLAXIS
     Route: 048
  4. OMEPRAZOLE [Suspect]
     Indication: PROPHYLAXIS
     Route: 042
  5. ENOXAPARIN SODIUM [Suspect]
     Indication: PROPHYLAXIS
  6. DICLOFENAC SODIUM [Suspect]
     Indication: PROPHYLAXIS
  7. SULFAMETHOXAZOLE W/TRIMETHOPRIM [Concomitant]
  8. TEICOPLANIN [Concomitant]
  9. CEFRADINE [Concomitant]
     Dates: start: 20070625, end: 20070626
  10. TINZAPARIN SODIUM [Concomitant]
  11. INDAPAMIDE [Concomitant]
  12. VALSARTAN [Concomitant]
  13. METRONIDAZOLE [Concomitant]
  14. BISOPROLOL FUMARATE [Concomitant]
  15. ASPIRIN [Concomitant]
  16. FUCIDINE CAP [Concomitant]

REACTIONS (1)
  - TOXIC EPIDERMAL NECROLYSIS [None]
